FAERS Safety Report 5788498-8 (Version None)
Quarter: 2008Q2

REPORT INFORMATION
  Report Type: 
  Country: None (occurrence: None)
  Receive Date: 20080625
  Receipt Date: 20080625
  Transmission Date: 20081010
  Serious: Yes (Life-Threatening, Hospitalization, Disabling, Other)
  Sender: FDA-Public Use
  Company Number: None

PATIENT
  Sex: Male
  Weight: 80.7403 kg

DRUGS (2)
  1. DIGITEK  125 MCG [Suspect]
     Indication: CARDIAC FAILURE CONGESTIVE
     Dosage: 125 MCG  1 TAB. DAY (30 CT.  DAILY (DURATION: TAKEN PRIOR TO 1-10-07 TO DATE, 5-7-08)
     Dates: start: 20070110
  2. DIGITEK  125 MCG [Suspect]
     Indication: ISCHAEMIC CARDIOMYOPATHY
     Dosage: 125 MCG  1 TAB. DAY (30 CT.  DAILY (DURATION: TAKEN PRIOR TO 1-10-07 TO DATE, 5-7-08)
     Dates: start: 20070110

REACTIONS (13)
  - ASTHENIA [None]
  - CARDIAC FAILURE [None]
  - CHEST DISCOMFORT [None]
  - CONFUSIONAL STATE [None]
  - DIZZINESS [None]
  - DYSPEPSIA [None]
  - MALAISE [None]
  - MENTAL STATUS CHANGES [None]
  - MOOD ALTERED [None]
  - NAUSEA [None]
  - PAIN [None]
  - THINKING ABNORMAL [None]
  - VOMITING [None]
